FAERS Safety Report 10977636 (Version 1)
Quarter: 2015Q1

REPORT INFORMATION
  Report Type: Spontaneous
  Country: US (occurrence: None)
  Receive Date: 20150226
  Receipt Date: 20150226
  Transmission Date: 20150721
  Serious: No
  Sender: FDA-Public Use
  Company Number: TPA2010A00413

PATIENT
  Age: 45 Year
  Sex: Male
  Weight: 122.47 kg

DRUGS (2)
  1. NORVASC [Concomitant]
     Active Substance: AMLODIPINE BESYLATE
  2. ULORIC [Suspect]
     Active Substance: FEBUXOSTAT
     Indication: GOUT
     Route: 048
     Dates: start: 200910

REACTIONS (2)
  - Hepatic enzyme increased [None]
  - Gout [None]

NARRATIVE: CASE EVENT DATE: 20100114
